FAERS Safety Report 6504243-2 (Version None)
Quarter: 2009Q4

REPORT INFORMATION
  Report Type: 
  Country: None (occurrence: None)
  Receive Date: 20091217
  Receipt Date: 20091208
  Transmission Date: 20100525
  Serious: Yes (Life-Threatening, Hospitalization)
  Sender: FDA-Public Use
  Company Number: DE-BAXTER-2009BH011990

PATIENT
  Age: 39 Year
  Sex: Male
  Weight: 73 kg

DRUGS (2)
  1. GAMMAGARD LIQUID [Suspect]
     Indication: ACUTE LYMPHOCYTIC LEUKAEMIA
     Route: 042
     Dates: start: 20090702, end: 20090702
  2. GAMMAGARD LIQUID [Suspect]
     Indication: PNEUMONIA
     Route: 042
     Dates: start: 20090702, end: 20090702

REACTIONS (1)
  - HYPERSENSITIVITY [None]
